FAERS Safety Report 4466920-7 (Version None)
Quarter: 2004Q3

REPORT INFORMATION
  Report Type: 
  Country: None (occurrence: None)
  Receive Date: 20040930
  Receipt Date: 20040930
  Transmission Date: 20050211
  Serious: No
  Sender: FDA-Public Use
  Company Number: None

PATIENT
  Age: 78 Year
  Sex: Male
  Weight: 79.5 kg

DRUGS (2)
  1. TAXOL [Suspect]
     Indication: NON-SMALL CELL LUNG CANCER
     Dosage: 335 MG IV, Q3 WKS
     Route: 042
     Dates: start: 20040122
  2. CARBOPLATIN [Suspect]
     Dosage: 525 MG IV Q 3 WKS
     Route: 042
     Dates: start: 20040507

REACTIONS (6)
  - ASTHENIA [None]
  - BRONCHITIS ACUTE [None]
  - BRONCHITIS CHRONIC [None]
  - CHRONIC OBSTRUCTIVE AIRWAYS DISEASE EXACERBATED [None]
  - PAIN [None]
  - WHITE BLOOD CELL COUNT INCREASED [None]
